FAERS Safety Report 15789649 (Version 1)
Quarter: 2018Q4

REPORT INFORMATION
  Report Type: Spontaneous
  Country: US (occurrence: US)
  Receive Date: 20181213
  Receipt Date: 20181213
  Transmission Date: 20190205
  Serious: No
  Sender: FDA-Public Use
  Company Number: None

PATIENT
  Age: 66 Year
  Sex: Female

DRUGS (1)
  1. MYCOPHENOLATE MOF CAP 250MG [Suspect]
     Active Substance: MYCOPHENOLATE MOFETIL
     Dates: start: 201805

REACTIONS (4)
  - Malaise [None]
  - Decreased appetite [None]
  - Dysgeusia [None]
  - Blood pressure increased [None]

NARRATIVE: CASE EVENT DATE: 20181210
